FAERS Safety Report 7712453-1 (Version None)
Quarter: 2011Q3

REPORT INFORMATION
  Report Type: 
  Country: None (occurrence: None)
  Receive Date: 20110826
  Receipt Date: 20110816
  Transmission Date: 20111222
  Serious: Yes (Other)
  Sender: FDA-Public Use
  Company Number: BR-US-EMD SERONO, INC.-7078940

PATIENT
  Sex: Female

DRUGS (2)
  1. REBIF [Suspect]
     Indication: RELAPSING-REMITTING MULTIPLE SCLEROSIS
     Dates: start: 20101213
  2. NEOSALDINA [Concomitant]

REACTIONS (3)
  - URINARY RETENTION [None]
  - NEPHROLITHIASIS [None]
  - COGNITIVE DISORDER [None]
